FAERS Safety Report 7105404-4 (Version None)
Quarter: 2010Q4

REPORT INFORMATION
  Report Type: 
  Country: None (occurrence: None)
  Receive Date: 20101116
  Receipt Date: 20101108
  Transmission Date: 20110411
  Serious: Yes (Hospitalization)
  Sender: FDA-Public Use
  Company Number: US-ELI_LILLY_AND_COMPANY-US201011002130

PATIENT
  Sex: Male

DRUGS (9)
  1. GEMCITABINE HCL [Suspect]
     Indication: PANCREATIC CARCINOMA
     Dosage: 1000 MG/M2, UNKNOWN
     Route: 065
     Dates: start: 20100929, end: 20101020
  2. ACETAMINOPHEN W/ CODEINE [Concomitant]
     Indication: PAIN
     Dosage: UNK, UNK
     Route: 048
     Dates: start: 20100601
  3. CREON [Concomitant]
     Indication: ENZYME SUPPLEMENTATION
     Dosage: UNK, UNK
     Route: 048
     Dates: start: 20100827
  4. LISINOPRIL [Concomitant]
     Indication: HYPERTENSION
     Dosage: UNK, UNK
     Route: 048
     Dates: start: 20070101
  5. METHYLPREDNISOLONE [Concomitant]
     Indication: CONTRAST MEDIA ALLERGY
     Route: 048
     Dates: start: 20090101
  6. POTASSIUM CHLORIDE [Concomitant]
     Indication: HYPOKALAEMIA
     Dates: start: 20100920
  7. PROCHLORPERAZINE MALEATE [Concomitant]
     Indication: PROPHYLAXIS
     Route: 048
     Dates: start: 20100909
  8. PROTONIX [Concomitant]
     Indication: GASTROOESOPHAGEAL REFLUX DISEASE
     Route: 048
     Dates: start: 20100826
  9. SENNA [Concomitant]
     Indication: CONSTIPATION
     Route: 048
     Dates: start: 20100826

REACTIONS (1)
  - DEEP VEIN THROMBOSIS [None]
